FAERS Safety Report 9062168 (Version 1)
Quarter: 2013Q1

REPORT INFORMATION
  Report Type: Spontaneous
  Country: US (occurrence: None)
  Receive Date: 20130122
  Receipt Date: 20130122
  Transmission Date: 20140127
  Serious: No
  Sender: FDA-Public Use
  Company Number: 1563715

PATIENT
  Age: 64 Year
  Sex: Male

DRUGS (5)
  1. METHOTREXATE [Suspect]
     Indication: DIFFUSE LARGE B-CELL LYMPHOMA
     Dosage: NOT REPORTED , UNKNOWN, INTRATHECAL
  2. CYCLOPHOSPHAMIDE [Suspect]
     Indication: DIFFUSE LARGE B-CELL LYMPHOMA
     Dosage: NOT REPORTED , UNKNOWN, INTRATHECAL
  3. DOXORUBICIN [Suspect]
     Indication: DIFFUSE LARGE B-CELL LYMPHOMA
     Dosage: NOT REPORTED, UNKNOWN, UNKNOWN
  4. PREDNISONE [Suspect]
     Indication: DIFFUSE LARGE B-CELL LYMPHOMA
     Dosage: NOT REPORTED, UNKNOWN, UNKNOWN
  5. ONCOVIN [Suspect]
     Indication: DIFFUSE LARGE B-CELL LYMPHOMA
     Dosage: NOT REPORTED, UNKNOWN, UNKNOWN

REACTIONS (6)
  - Onycholysis [None]
  - Eye swelling [None]
  - Eyelid ptosis [None]
  - Nasal disorder [None]
  - Eyelid oedema [None]
  - Drug interaction [None]
